FAERS Safety Report 18682653 (Version 3)
Quarter: 2021Q1

REPORT INFORMATION
  Report Type: Spontaneous
  Country: US (occurrence: US)
  Receive Date: 20201230
  Receipt Date: 20210201
  Transmission Date: 20210419
  Serious: No
  Sender: FDA-Public Use
  Company Number: US-AMGEN-USASP2020211672

PATIENT
  Age: 80 Year
  Sex: Female
  Weight: 59.41 kg

DRUGS (1)
  1. REPATHA [Suspect]
     Active Substance: EVOLOCUMAB
     Indication: BLOOD CHOLESTEROL INCREASED
     Dosage: 140 MILLIGRAM, Q2WK
     Route: 065
     Dates: start: 20201130

REACTIONS (5)
  - Accidental exposure to product [Unknown]
  - Injury associated with device [Unknown]
  - Injection site swelling [Recovered/Resolved]
  - Wrong technique in device usage process [Unknown]
  - Injection site hypoaesthesia [Unknown]

NARRATIVE: CASE EVENT DATE: 20201228
